FAERS Safety Report 4431775-3 (Version None)
Quarter: 2004Q3

REPORT INFORMATION
  Report Type: 
  Country: None (occurrence: None)
  Receive Date: 20040819
  Receipt Date: 20040811
  Transmission Date: 20050211
  Serious: Yes (Life-Threatening, Hospitalization)
  Sender: FDA-Public Use
  Company Number: FRWYE964211AUG04

PATIENT
  Age: 21 Year
  Sex: Female

DRUGS (4)
  1. ADEPAL (LEVONORGESTREL/ETHINYL ESTRADIOL, TABLET, 0) [Suspect]
     Dosage: 1 TABLET 1X PER 1 DAY ORAL
     Route: 048
     Dates: start: 20040719
  2. DOLIPRANE (PARACETAMOL) [Concomitant]
  3. LYSANXIA (PRAZEPAM) [Concomitant]
  4. DEPAKINE CRONO (VALPROATE SODIUM) [Concomitant]

REACTIONS (2)
  - MEGAKARYOCYTES INCREASED [None]
  - THROMBOCYTOPENIC PURPURA [None]
